FAERS Safety Report 13478266 (Version 1)
Quarter: 2017Q2

REPORT INFORMATION
  Report Type: Spontaneous
  Country: JP (occurrence: JP)
  Receive Date: 20170425
  Receipt Date: 20170425
  Transmission Date: 20170830
  Serious: Yes (Death)
  Sender: FDA-Public Use
  Company Number: JP-TEVA-2017-JP-001182J

PATIENT
  Age: 80 Year
  Sex: Female
  Weight: 41 kg

DRUGS (5)
  1. REBAMIPIDE [Concomitant]
     Active Substance: REBAMIPIDE
     Route: 048
     Dates: start: 20160716
  2. PRECIPITATED CALCIUM CARBONATE [Concomitant]
     Active Substance: CALCIUM CARBONATE
     Route: 048
     Dates: start: 20160715
  3. LANSOPRAZOLE OD TABLET 30MG ^TEVA^ [Suspect]
     Active Substance: LANSOPRAZOLE
     Indication: STRESS ULCER
     Dosage: 30 MILLIGRAM DAILY;
     Route: 048
     Dates: start: 20160725, end: 20160804
  4. ALEVIATIN [Suspect]
     Active Substance: PHENYTOIN SODIUM
     Indication: STATUS EPILEPTICUS
     Route: 048
     Dates: start: 20160719, end: 20160803
  5. FUROSEMIDE. [Concomitant]
     Active Substance: FUROSEMIDE
     Route: 048
     Dates: start: 20160715

REACTIONS (1)
  - Granulocytopenia [Fatal]

NARRATIVE: CASE EVENT DATE: 20160803
